FAERS Safety Report 4940286-8 (Version None)
Quarter: 2006Q1

REPORT INFORMATION
  Report Type: 
  Country: None (occurrence: None)
  Receive Date: 20060310
  Receipt Date: 20051011
  Transmission Date: 20060701
  Serious: Yes (Hospitalization)
  Sender: FDA-Public Use
  Company Number: US-MERCK-0510USA06601

PATIENT
  Age: 59 Year
  Sex: Female
  Weight: 100 kg

DRUGS (7)
  1. VIOXX [Suspect]
     Indication: OSTEOARTHRITIS
     Route: 048
     Dates: start: 20001201, end: 20040822
  2. VIOXX [Suspect]
     Indication: MONARTHRITIS
     Route: 048
     Dates: start: 20001201, end: 20040822
  3. ESTRACE [Concomitant]
     Indication: HORMONE REPLACEMENT THERAPY
     Route: 065
     Dates: start: 19950101, end: 20040801
  4. VICODIN ES [Concomitant]
     Indication: PAIN
     Route: 065
  5. TENORMIN [Concomitant]
     Indication: HYPERTENSION
     Route: 065
  6. ZANTAC [Concomitant]
     Indication: DYSPEPSIA
     Route: 065
  7. LODINE [Concomitant]
     Indication: ARTHRALGIA
     Route: 065

REACTIONS (1)
  - ACUTE MYOCARDIAL INFARCTION [None]
